FAERS Safety Report 13701935 (Version 4)
Quarter: 2017Q4

REPORT INFORMATION
  Report Type: Spontaneous
  Country: US (occurrence: US)
  Receive Date: 20170629
  Receipt Date: 20171109
  Transmission Date: 20180320
  Serious: Yes (Hospitalization, Other)
  Sender: FDA-Public Use
  Company Number: US-PFIZER INC-2017279444

PATIENT
  Age: 63 Year
  Sex: Female

DRUGS (1)
  1. XELJANZ [Suspect]
     Active Substance: TOFACITINIB CITRATE
     Indication: ARTHRALGIA
     Dosage: 5 MG, UNK
     Dates: start: 201507

REACTIONS (4)
  - Eustachian tube patulous [Unknown]
  - Drug ineffective [Unknown]
  - Arthralgia [Unknown]
  - Dehydration [Unknown]

NARRATIVE: CASE EVENT DATE: 201707
